FAERS Safety Report 8370141-5 (Version None)
Quarter: 2012Q2

REPORT INFORMATION
  Report Type: 
  Country: None (occurrence: None)
  Receive Date: 20120518
  Receipt Date: 20120510
  Transmission Date: 20120825
  Serious: Yes (Death)
  Sender: FDA-Public Use
  Company Number: NO-VALEANT-2012VX002211

PATIENT

DRUGS (3)
  1. FLUOROURACIL [Suspect]
     Route: 065
  2. CISPLATIN [Suspect]
     Route: 065
  3. THERAPEUTIC RADIOPHARMACEUTICALS [Suspect]
     Route: 065

REACTIONS (1)
  - NEUTROPENIC SEPSIS [None]
